FAERS Safety Report 6653388-5 (Version None)
Quarter: 2010Q1

REPORT INFORMATION
  Report Type: 
  Country: None (occurrence: None)
  Receive Date: 20100326
  Receipt Date: 20100317
  Transmission Date: 20100710
  Serious: Yes (Disabling, Other)
  Sender: FDA-Public Use
  Company Number: PHHY2010GB17345

PATIENT
  Age: 27 Year
  Sex: Female
  Weight: 54 kg

DRUGS (6)
  1. CARBAMAZEPINE [Suspect]
     Indication: EPILEPSY
     Dosage: 1.2 MG, QD
     Route: 048
     Dates: start: 20050101
  2. CLOBAZAM [Interacting]
     Indication: EPILEPSY
     Dosage: 10 MG, QD
     Route: 048
     Dates: start: 20080101
  3. KEPPRA [Interacting]
     Indication: EPILEPSY
     Dosage: 3 G, QD
     Route: 048
     Dates: start: 20060101
  4. ZONEGRAN [Interacting]
     Indication: EPILEPSY
     Dosage: 25 MG, BID
     Route: 048
     Dates: start: 20091101
  5. ZONEGRAN [Interacting]
     Dosage: 100 MG, BID
     Route: 048
     Dates: start: 20091101
  6. ZONEGRAN [Interacting]
     Dosage: 75 MG, QD
     Route: 048
     Dates: start: 20100206

REACTIONS (6)
  - APHASIA [None]
  - COGNITIVE DISORDER [None]
  - DEPRESSED MOOD [None]
  - DRUG INTERACTION [None]
  - FATIGUE [None]
  - LETHARGY [None]
